FAERS Safety Report 4330219-X (Version None)
Quarter: 2004Q1

REPORT INFORMATION
  Report Type: 
  Country: None (occurrence: None)
  Receive Date: 20040329
  Receipt Date: 20040315
  Transmission Date: 20041129
  Serious: Yes (Hospitalization)
  Sender: FDA-Public Use
  Company Number: 04P-167-0253935-00

PATIENT
  Age: 65 Year
  Sex: Female

DRUGS (6)
  1. CLARITHROMYCIN          (BIAXIN) (CLARITHROMYCIN LACTOBINATE) [Suspect]
     Indication: BRONCHOPNEUMONIA
     Dosage: 500 MG 2 IN 1 D INTRAVENOUS DRIP
     Route: 041
  2. CEFOTAXIME [Concomitant]
  3. THYROXINE [Concomitant]
  4. SIMVASTATIN [Concomitant]
  5. CREON [Concomitant]
  6. GLICLAZIDE [Concomitant]

REACTIONS (4)
  - INFUSION RELATED REACTION [None]
  - INFUSION SITE ERYTHEMA [None]
  - INFUSION SITE PAIN [None]
  - THROMBOPHLEBITIS [None]
